FAERS Safety Report 25417999 (Version 1)
Quarter: 2025Q2

REPORT INFORMATION
  Report Type: Spontaneous
  Country: US (occurrence: None)
  Receive Date: 20250606
  Receipt Date: 20250606
  Transmission Date: 20250717
  Serious: Yes (Hospitalization)
  Sender: FDA-CTU
  Company Number: None

PATIENT
  Age: 79 Year
  Sex: Male

DRUGS (1)
  1. CLOZAPINE [Suspect]
     Active Substance: CLOZAPINE
     Indication: Schizophrenia
     Dosage: FREQUENCY : AT BEDTIME;?
     Route: 048
     Dates: end: 20250324

REACTIONS (5)
  - Pneumonia aspiration [None]
  - Confusional state [None]
  - Tardive dyskinesia [None]
  - Salivary hypersecretion [None]
  - Sedation [None]

NARRATIVE: CASE EVENT DATE: 20250324
